FAERS Safety Report 20055136 (Version 1)
Quarter: 2021Q4

REPORT INFORMATION
  Report Type: Spontaneous
  Country: US (occurrence: US)
  Receive Date: 20211110
  Receipt Date: 20211110
  Transmission Date: 20220303
  Serious: No
  Sender: FDA-Public Use
  Company Number: US-PFIZER INC-202101358772

PATIENT
  Age: 82 Year
  Sex: Female
  Weight: 45.36 kg

DRUGS (2)
  1. BRAFTOVI [Suspect]
     Active Substance: ENCORAFENIB
     Indication: Lung cancer metastatic
     Dosage: UNK
     Dates: start: 20211009
  2. MEKTOVI [Suspect]
     Active Substance: BINIMETINIB
     Indication: Lung cancer metastatic
     Dosage: UNK
     Dates: start: 20211009

REACTIONS (2)
  - Diarrhoea [Not Recovered/Not Resolved]
  - Vomiting [Not Recovered/Not Resolved]

NARRATIVE: CASE EVENT DATE: 20211011
